FAERS Safety Report 8801019 (Version 2)
Quarter: 2012Q4

REPORT INFORMATION
  Report Type: Report from Study
  Country: US (occurrence: US)
  Receive Date: 20120920
  Receipt Date: 20121113
  Transmission Date: 20130627
  Serious: Yes (Other)
  Sender: FDA-Public Use
  Company Number: US-GILEAD-2012-0061589

PATIENT
  Age: 0 Year
  Sex: Male

DRUGS (3)
  1. EMTRICITABINE/TENOFOVIR DISOPROXIL FUMARATE [Suspect]
     Indication: HIV INFECTION
     Dosage: 1 DF, QD
     Route: 064
     Dates: start: 20120206, end: 20121102
  2. KALETRA [Concomitant]
     Indication: HIV INFECTION
     Dosage: 4 DF, QD
     Route: 064
     Dates: start: 20120206, end: 20121102
  3. RETROVIR [Concomitant]
     Dosage: UNK
     Dates: start: 20121102, end: 20121102

REACTIONS (2)
  - Ventricular septal defect [Unknown]
  - Congenital arterial malformation [Unknown]
